FAERS Safety Report 4982012-2 (Version None)
Quarter: 2006Q2

REPORT INFORMATION
  Report Type: 
  Country: None (occurrence: None)
  Receive Date: 20060425
  Receipt Date: 20060420
  Transmission Date: 20061013
  Serious: Yes (Death)
  Sender: FDA-Public Use
  Company Number: 2006AC00779

PATIENT
  Age: 47 Year
  Sex: Female

DRUGS (4)
  1. PROPOFOL [Suspect]
     Indication: SEDATION
     Route: 042
  2. LIDOCAINE [Concomitant]
     Indication: ANAESTHESIA
     Dosage: 3 ML TEST DOSE
     Route: 008
  3. LIDOCAINE [Concomitant]
     Dosage: GIVEN 5 MINUTES AFTER TEST DOSE.
     Route: 008
  4. LIDOCAINE [Concomitant]
     Dosage: ANAESTHESIA MAINTENANCE
     Route: 008

REACTIONS (6)
  - BRADYCARDIA [None]
  - CARDIAC ARREST [None]
  - HYPOTENSION [None]
  - INCORRECT DRUG ADMINISTRATION RATE [None]
  - PROCEDURAL COMPLICATION [None]
  - WRONG TECHNIQUE IN DRUG USAGE PROCESS [None]
